FAERS Safety Report 17629694 (Version 1)
Quarter: 2020Q2

REPORT INFORMATION
  Report Type: Spontaneous
  Country: US (occurrence: US)
  Receive Date: 20200406
  Receipt Date: 20200406
  Transmission Date: 20200713
  Serious: Yes (Life-Threatening, Hospitalization)
  Sender: FDA-Public Use
  Company Number: US-MYLANLABS-2020M1034596

PATIENT
  Age: 15 Year
  Sex: Male

DRUGS (5)
  1. METHIMAZOLE. [Suspect]
     Active Substance: METHIMAZOLE
     Indication: THYROTOXIC CRISIS
     Route: 065
  2. DAUNORUBICIN [Suspect]
     Active Substance: DAUNORUBICIN
     Indication: ACUTE LYMPHOCYTIC LEUKAEMIA
     Route: 065
  3. METHOTREXATE. [Suspect]
     Active Substance: METHOTREXATE
     Indication: ACUTE LYMPHOCYTIC LEUKAEMIA
     Route: 037
  4. PEGASPARGASE [Suspect]
     Active Substance: PEGASPARGASE
     Indication: ACUTE LYMPHOCYTIC LEUKAEMIA
     Route: 065
  5. VINCRISTINE [Suspect]
     Active Substance: VINCRISTINE
     Indication: ACUTE LYMPHOCYTIC LEUKAEMIA
     Route: 065

REACTIONS (6)
  - Infectious thyroiditis [Recovered/Resolved]
  - Thyrotoxic crisis [Recovered/Resolved]
  - Drug ineffective [Unknown]
  - Shock [Recovered/Resolved]
  - Candida infection [Recovered/Resolved]
  - Left ventricular failure [Recovered/Resolved]
